FAERS Safety Report 24380337 (Version 2)
Quarter: 2025Q1

REPORT INFORMATION
  Report Type: Spontaneous
  Country: US (occurrence: US)
  Receive Date: 20240930
  Receipt Date: 20250123
  Transmission Date: 20250409
  Serious: Yes (Other)
  Sender: SANOFI AVENTIS
  Company Number: US-SA-2024SA280361

PATIENT
  Sex: Female
  Weight: 90.91 kg

DRUGS (11)
  1. DUPIXENT [Suspect]
     Active Substance: DUPILUMAB
     Indication: Asthma
     Dosage: 300 MG, QOW
     Route: 058
  2. DUPIXENT [Suspect]
     Active Substance: DUPILUMAB
     Indication: Rhinitis allergic
  3. XYZAL [Concomitant]
     Active Substance: LEVOCETIRIZINE DIHYDROCHLORIDE
  4. ORENCIA [Concomitant]
     Active Substance: ABATACEPT
  5. Acid reducer [Concomitant]
  6. DYMISTA [Concomitant]
     Active Substance: AZELASTINE HYDROCHLORIDE\FLUTICASONE PROPIONATE
  7. PANTOPRAZOLE SODIUM [Concomitant]
     Active Substance: PANTOPRAZOLE SODIUM
  8. ASPIRIN [Concomitant]
     Active Substance: ASPIRIN
  9. PROLIA [Concomitant]
     Active Substance: DENOSUMAB
  10. METHOTREXATE [Concomitant]
     Active Substance: METHOTREXATE
  11. GABAPENTIN [Concomitant]
     Active Substance: GABAPENTIN

REACTIONS (3)
  - Rheumatoid arthritis [Recovering/Resolving]
  - Heart rate increased [Unknown]
  - Product use in unapproved indication [Unknown]
